FAERS Safety Report 10173617 (Version 3)
Quarter: 2015Q3

REPORT INFORMATION
  Report Type: Spontaneous
  Country: US (occurrence: US)
  Receive Date: 20140515
  Receipt Date: 20150817
  Transmission Date: 20151125
  Serious: No
  Sender: FDA-Public Use
  Company Number: US-GILEAD-2014-0102175

PATIENT
  Age: 70 Year
  Sex: Female

DRUGS (4)
  1. RIOCIGUAT [Concomitant]
     Active Substance: RIOCIGUAT
  2. SILDENAFIL. [Concomitant]
     Active Substance: SILDENAFIL
  3. TYVASO [Concomitant]
     Active Substance: TREPROSTINIL
  4. LETAIRIS [Suspect]
     Active Substance: AMBRISENTAN
     Indication: PULMONARY ARTERIAL HYPERTENSION
     Dosage: 10 MG, QD
     Route: 065
     Dates: start: 20130318

REACTIONS (3)
  - Dyspepsia [Unknown]
  - Nausea [Unknown]
  - Vomiting [Unknown]
